FAERS Safety Report 4993269-6 (Version None)
Quarter: 2006Q1

REPORT INFORMATION
  Report Type: 
  Country: None (occurrence: None)
  Receive Date: 20060314
  Receipt Date: 20050524
  Transmission Date: 20060701
  Serious: Yes (Hospitalization)
  Sender: FDA-Public Use
  Company Number: 200511486BCC

PATIENT
  Age: 80 Year
  Sex: Female
  Weight: 64.8644 kg

DRUGS (2)
  1. ALEVE [Suspect]
     Indication: BACK PAIN
     Dosage: 220 MG, QD, ORAL
     Route: 048
  2. PLAVIX [Concomitant]

REACTIONS (1)
  - RECTAL HAEMORRHAGE [None]
